FAERS Safety Report 26026006 (Version 1)
Quarter: 2025Q4

REPORT INFORMATION
  Report Type: Spontaneous
  Country: US (occurrence: None)
  Receive Date: 20251111
  Receipt Date: 20251111
  Transmission Date: 20260117
  Serious: Yes (Hospitalization)
  Sender: FDA-CTU
  Company Number: None

PATIENT
  Age: 64 Year
  Sex: Female
  Weight: 43.1 kg

DRUGS (2)
  1. PEMBROLIZUMAB [Suspect]
     Active Substance: PEMBROLIZUMAB
     Dates: end: 20251001
  2. ALIMTA [Suspect]
     Active Substance: PEMETREXED DISODIUM
     Dates: end: 20251022

REACTIONS (6)
  - Syncope [None]
  - Ultrasound Doppler abnormal [None]
  - Diastolic dysfunction [None]
  - Aortic valve sclerosis [None]
  - Aortic valve incompetence [None]
  - Tricuspid valve incompetence [None]

NARRATIVE: CASE EVENT DATE: 20251029
